FAERS Safety Report 25428036 (Version 1)
Quarter: 2025Q2

REPORT INFORMATION
  Report Type: Spontaneous
  Country: US (occurrence: US)
  Receive Date: 20250612
  Receipt Date: 20250612
  Transmission Date: 20250717
  Serious: No
  Sender: ROCHE
  Company Number: US-ROCHE-10000309548

PATIENT
  Sex: Female
  Weight: 65.77 kg

DRUGS (11)
  1. VABYSMO [Suspect]
     Active Substance: FARICIMAB-SVOA
     Indication: Macular degeneration
     Dosage: INJECTION IN THE EYEBALL, BOTH EYES, PREFILLED SYRINGE
     Route: 031
     Dates: start: 2025
  2. VABYSMO [Suspect]
     Active Substance: FARICIMAB-SVOA
  3. VABYSMO [Suspect]
     Active Substance: FARICIMAB-SVOA
  4. VABYSMO [Suspect]
     Active Substance: FARICIMAB-SVOA
  5. ASPIRIN [Concomitant]
     Active Substance: ASPIRIN
     Indication: Anticoagulant therapy
     Dosage: DELAYED ACTION
     Route: 048
     Dates: start: 2018
  6. CARVEDILOL [Concomitant]
     Active Substance: CARVEDILOL
     Route: 048
     Dates: start: 2018
  7. VITAMIN D3 [Concomitant]
     Active Substance: CHOLECALCIFEROL
     Route: 048
     Dates: start: 2018
  8. ISOSORBIDE [Concomitant]
     Active Substance: ISOSORBIDE
     Route: 048
     Dates: start: 2018
  9. AMLODIPINE [Concomitant]
     Active Substance: AMLODIPINE BESYLATE
     Route: 048
     Dates: start: 2018
  10. GLIPIZIDE [Concomitant]
     Active Substance: GLIPIZIDE
     Indication: Glucose tolerance impaired
     Route: 048
     Dates: start: 2015
  11. ATORVASTATIN [Concomitant]
     Active Substance: ATORVASTATIN
     Indication: Blood cholesterol
     Route: 048
     Dates: start: 1995

REACTIONS (2)
  - Off label use [Unknown]
  - No adverse event [Unknown]
